FAERS Safety Report 21407028 (Version 1)
Quarter: 2022Q4

REPORT INFORMATION
  Report Type: Spontaneous
  Country: US (occurrence: None)
  Receive Date: 20221003
  Receipt Date: 20221003
  Transmission Date: 20230113
  Serious: Yes (Hospitalization)
  Sender: FDA-Public Use
  Company Number: None

PATIENT
  Age: 57 Year
  Sex: Female
  Weight: 65.25 kg

DRUGS (2)
  1. LOMOTIL [Suspect]
     Active Substance: ATROPINE SULFATE\DIPHENOXYLATE HYDROCHLORIDE
     Indication: Diarrhoea
     Dosage: OTHER FREQUENCY : PRN 4 TIME A DAY;?
     Route: 048
     Dates: start: 20220922, end: 20220922
  2. LEVOTHYROXINE [Concomitant]
     Active Substance: LEVOTHYROXINE

REACTIONS (7)
  - Asthenia [None]
  - Hyperhidrosis [None]
  - Abdominal pain upper [None]
  - Blood pressure decreased [None]
  - Heart rate decreased [None]
  - Sepsis [None]
  - Adverse drug reaction [None]

NARRATIVE: CASE EVENT DATE: 20220923
